FAERS Safety Report 6813262-8 (Version None)
Quarter: 2010Q2

REPORT INFORMATION
  Report Type: 
  Country: None (occurrence: None)
  Receive Date: 20100628
  Receipt Date: 20100617
  Transmission Date: 20101027
  Serious: Yes (Hospitalization)
  Sender: FDA-Public Use
  Company Number: 014118

PATIENT
  Sex: Female

DRUGS (1)
  1. CIMZIA [Suspect]
     Indication: CROHN'S DISEASE
     Dosage: (TEMPORARILY DISCONTINUED DUE TO HOSPITALIZATION SUBCUTANEOUS)
     Route: 058
     Dates: start: 20100215, end: 20100101

REACTIONS (3)
  - CONDITION AGGRAVATED [None]
  - CROHN'S DISEASE [None]
  - WOUND INFECTION [None]
